FAERS Safety Report 9095290 (Version 1)
Quarter: 2013Q1

REPORT INFORMATION
  Report Type: Spontaneous
  Country: PT (occurrence: None)
  Receive Date: 20130123
  Receipt Date: 20130123
  Transmission Date: 20140127
  Serious: Yes (Disabling)
  Sender: FDA-Public Use
  Company Number: INDI-PT-2013-0002

PATIENT
  Age: 42 Year
  Sex: Female

DRUGS (1)
  1. INDOCID [Suspect]
     Indication: MIGRAINE
     Route: 054
     Dates: start: 20121011, end: 20121111

REACTIONS (2)
  - Haematochezia [None]
  - Abdominal pain [None]
